FAERS Safety Report 18718207 (Version 5)
Quarter: 2021Q1

REPORT INFORMATION
  Report Type: Spontaneous
  Country: US (occurrence: US)
  Receive Date: 20210108
  Receipt Date: 20210130
  Transmission Date: 20210419
  Serious: Yes (Hospitalization)
  Sender: FDA-Public Use
  Company Number: US-SA-2021SA005537

PATIENT
  Age: 45 Year
  Sex: Male

DRUGS (3)
  1. LANTUS [Suspect]
     Active Substance: INSULIN GLARGINE
     Indication: TYPE 1 DIABETES MELLITUS
     Dosage: 13 IU, QD
     Route: 065
     Dates: start: 20180106, end: 20210103
  2. LANTUS [Suspect]
     Active Substance: INSULIN GLARGINE
     Dosage: (REDUCED HIS DOSE WITHOUT DOCTOR KNOWLEDGE )
     Route: 065
     Dates: start: 20210104
  3. LANTUS [Suspect]
     Active Substance: INSULIN GLARGINE
     Dosage: 12 IU, QD (AT NIGHT )
     Route: 065

REACTIONS (5)
  - Poor quality sleep [Unknown]
  - Intentional product use issue [Unknown]
  - Blood glucose decreased [Not Recovered/Not Resolved]
  - Blood glucose decreased [Recovered/Resolved]
  - Product quality issue [Recovered/Resolved]

NARRATIVE: CASE EVENT DATE: 20201225
